FAERS Safety Report 15770552 (Version 2)
Quarter: 2019Q1

REPORT INFORMATION
  Report Type: Spontaneous
  Country: JP (occurrence: JP)
  Receive Date: 20181228
  Receipt Date: 20190118
  Transmission Date: 20190417
  Serious: Yes (Death)
  Sender: FDA-Public Use
  Company Number: JP-ELI_LILLY_AND_COMPANY-JP201812011093

PATIENT
  Age: 64 Year
  Sex: Female

DRUGS (4)
  1. LONSURF [Suspect]
     Active Substance: TIPIRACIL HYDROCHLORIDE\TRIFLURIDINE
     Indication: COLORECTAL CANCER METASTATIC
     Dosage: 50 MG, BID
     Route: 065
     Dates: start: 20181017
  2. ERBITUX [Suspect]
     Active Substance: CETUXIMAB
     Indication: COLORECTAL CANCER METASTATIC
     Dosage: 552 MG, UNKNOWN
     Route: 041
     Dates: start: 20181017
  3. LONSURF [Suspect]
     Active Substance: TIPIRACIL HYDROCHLORIDE\TRIFLURIDINE
     Indication: COLORECTAL CANCER METASTATIC
     Dosage: 5 STRAIGHT DAYS WITH 2 DAYS REST
     Route: 041
     Dates: start: 20181017, end: 20181026
  4. ERBITUX [Suspect]
     Active Substance: CETUXIMAB
     Dosage: 345 MG, WEEKLY (1/W)
     Route: 041
     Dates: end: 20181031

REACTIONS (2)
  - Off label use [Unknown]
  - Malignant neoplasm progression [Fatal]

NARRATIVE: CASE EVENT DATE: 20181207
